FAERS Safety Report 4275893-1 (Version None)
Quarter: 2004Q1

REPORT INFORMATION
  Report Type: 
  Country: None (occurrence: None)
  Receive Date: 20040121
  Receipt Date: 20030225
  Transmission Date: 20041129
  Serious: No
  Sender: FDA-Public Use
  Company Number: US-GLAXOSMITHKLINE-A0397986A

PATIENT
  Age: 45 Year
  Sex: Female

DRUGS (6)
  1. VALTREX [Suspect]
     Route: 048
  2. ADVAIR DISKUS 250/50 [Concomitant]
     Route: 055
  3. FLOVENT [Concomitant]
     Route: 055
  4. AVANDIA [Concomitant]
     Route: 048
  5. GLUCOPHAGE [Concomitant]
  6. INSULIN [Concomitant]

REACTIONS (1)
  - BACK PAIN [None]
